FAERS Safety Report 6300490-3 (Version None)
Quarter: 2009Q3

REPORT INFORMATION
  Report Type: 
  Country: None (occurrence: None)
  Receive Date: 20090803
  Receipt Date: 20090717
  Transmission Date: 20100115
  Serious: Yes (Death)
  Sender: FDA-Public Use
  Company Number: BVT-000268

PATIENT

DRUGS (3)
  1. KINERET [Suspect]
     Indication: RHEUMATOID ARTHRITIS
  2. PREDNISONE TAB [Suspect]
     Indication: RHEUMATOID ARTHRITIS
  3. METHOTREXATE [Suspect]
     Indication: RHEUMATOID ARTHRITIS

REACTIONS (5)
  - HERPES SIMPLEX [None]
  - HYPOXIA [None]
  - NO THERAPEUTIC RESPONSE [None]
  - PNEUMONIA BACTERIAL [None]
  - PNEUMONITIS [None]
